FAERS Safety Report 6000334-3 (Version None)
Quarter: 2008Q4

REPORT INFORMATION
  Report Type: 
  Country: None (occurrence: None)
  Receive Date: 20081211
  Receipt Date: 20081211
  Transmission Date: 20090506
  Serious: Yes (Hospitalization)
  Sender: FDA-Public Use
  Company Number: None

PATIENT
  Sex: Male
  Weight: 46.82 kg

DRUGS (2)
  1. CISPLATIN [Suspect]
     Dosage: 45 MG
  2. ERBITUX [Suspect]
     Dosage: 373 MG

REACTIONS (9)
  - BACTERAEMIA [None]
  - BACTERIAL INFECTION [None]
  - BLOOD CULTURE POSITIVE [None]
  - BLOOD URINE PRESENT [None]
  - NAUSEA [None]
  - PROTEIN URINE PRESENT [None]
  - URINARY TRACT INFECTION [None]
  - URINE LEUKOCYTE ESTERASE POSITIVE [None]
  - VOMITING [None]
